FAERS Safety Report 8177695-2 (Version None)
Quarter: 2012Q1

REPORT INFORMATION
  Report Type: 
  Country: None (occurrence: None)
  Receive Date: 20120301
  Receipt Date: 20120227
  Transmission Date: 20120608
  Serious: Yes (Life-Threatening)
  Sender: FDA-Public Use
  Company Number: PHHY2012FR012763

PATIENT
  Sex: Female

DRUGS (5)
  1. ONBREZ [Suspect]
     Indication: EMPHYSEMA
     Dosage: 150 UG, QD
     Dates: start: 20111101
  2. ANTIDEPRESSANTS [Concomitant]
  3. DICLOFENAC SODIUM [Concomitant]
  4. ONBREZ [Suspect]
     Dosage: 300 UG, QD
     Dates: start: 20120103
  5. ANXIOLYTICS [Concomitant]

REACTIONS (3)
  - INCORRECT DOSE ADMINISTERED [None]
  - SUFFOCATION FEELING [None]
  - CAPSULE PHYSICAL ISSUE [None]
